FAERS Safety Report 13867493 (Version 1)
Quarter: 2017Q3

REPORT INFORMATION
  Report Type: Spontaneous
  Country: US (occurrence: None)
  Receive Date: 20170814
  Receipt Date: 20170814
  Transmission Date: 20171127
  Serious: No
  Sender: FDA-Public Use
  Company Number: None

PATIENT
  Age: 52 Year
  Sex: Male

DRUGS (1)
  1. HUMIRA [Suspect]
     Active Substance: ADALIMUMAB
     Indication: PRODUCT USED FOR UNKNOWN INDICATION
     Route: 058
     Dates: start: 20160926, end: 20170808

REACTIONS (5)
  - Paraesthesia [None]
  - Hot flush [None]
  - Middle insomnia [None]
  - Drug specific antibody [None]
  - Therapy cessation [None]

NARRATIVE: CASE EVENT DATE: 20170501
